FAERS Safety Report 12953004 (Version 1)
Quarter: 2016Q4

REPORT INFORMATION
  Report Type: Spontaneous
  Country: US (occurrence: US)
  Receive Date: 20161117
  Receipt Date: 20161117
  Transmission Date: 20170207
  Serious: Yes (Hospitalization)
  Sender: FDA-Public Use
  Company Number: US-ACTELION-A-NJ2016-145529

PATIENT
  Age: 64 Year
  Sex: Female

DRUGS (1)
  1. VELETRI [Suspect]
     Active Substance: EPOPROSTENOL
     Indication: PULMONARY ARTERIAL HYPERTENSION
     Dosage: 17 NG/KG, PER MIN
     Route: 042
     Dates: start: 20161104

REACTIONS (7)
  - Fluid retention [Unknown]
  - Device damage [Unknown]
  - Catheter management [Unknown]
  - Infectious colitis [Unknown]
  - Abdominal pain [Unknown]
  - Dyspnoea [Unknown]
  - Sluggishness [Unknown]

NARRATIVE: CASE EVENT DATE: 20161104
